FAERS Safety Report 6313615-0 (Version None)
Quarter: 2009Q3

REPORT INFORMATION
  Report Type: 
  Country: None (occurrence: None)
  Receive Date: 20090818
  Receipt Date: 20090810
  Transmission Date: 20100115
  Serious: Yes (Hospitalization)
  Sender: FDA-Public Use
  Company Number: US-MERCK-00012508

PATIENT
  Age: 84 Year
  Sex: Female
  Weight: 67 kg

DRUGS (17)
  1. SINGULAIR [Suspect]
     Indication: ASTHMA
     Route: 048
     Dates: start: 19991217, end: 20000120
  2. FLOVENT [Concomitant]
     Indication: ASTHMA
  3. EVISTA [Concomitant]
     Route: 048
  4. DIABETA [Concomitant]
     Route: 048
  5. SEREVENT [Concomitant]
  6. PULMICORT-100 [Concomitant]
  7. PREDNISONE [Concomitant]
     Route: 048
     Dates: start: 19940101
  8. ASPIRIN [Concomitant]
     Route: 048
  9. IMDUR [Concomitant]
     Route: 048
  10. PROCARDIA XL [Concomitant]
     Route: 048
  11. PLAVIX [Concomitant]
     Route: 048
  12. ALLOPURINOL [Concomitant]
     Route: 048
  13. LASIX [Concomitant]
     Route: 048
  14. POTASSIUM CHLORIDE [Concomitant]
     Route: 048
  15. DIOVAN [Concomitant]
     Route: 048
  16. PRAVACHOL [Concomitant]
     Route: 048
  17. BETOPTIC [Concomitant]
     Route: 065

REACTIONS (2)
  - ANAEMIA [None]
  - HEPATITIS [None]
